FAERS Safety Report 7799268-3 (Version None)
Quarter: 2011Q4

REPORT INFORMATION
  Report Type: 
  Country: None (occurrence: None)
  Receive Date: 20111006
  Receipt Date: 20110331
  Transmission Date: 20120403
  Serious: No
  Sender: FDA-Public Use
  Company Number: US-GLAXOSMITHKLINE-A0920901A

PATIENT
  Age: 30 Year
  Sex: Female

DRUGS (4)
  1. IMPRUV [Concomitant]
  2. DUAC [Suspect]
     Indication: ACNE
     Dosage: 1APP PER DAY
     Route: 061
     Dates: start: 20110330, end: 20110330
  3. TRETINOIN [Concomitant]
  4. BENADRYL [Concomitant]

REACTIONS (5)
  - ERYTHEMA [None]
  - EYE SWELLING [None]
  - EYELIDS PRURITUS [None]
  - VISUAL IMPAIRMENT [None]
  - PRURITUS [None]
